FAERS Safety Report 7799780-7 (Version None)
Quarter: 2011Q4

REPORT INFORMATION
  Report Type: 
  Country: None (occurrence: None)
  Receive Date: 20111004
  Receipt Date: 20110822
  Transmission Date: 20120403
  Serious: Yes (Hospitalization)
  Sender: FDA-Public Use
  Company Number: CIO10018648

PATIENT
  Age: 13 Year
  Sex: Male
  Weight: 47 kg

DRUGS (1)
  1. PEPTO-BISMOL, CHERRY FLAVOR (BISMUTH SUBSALICYLATE 262 MG, CALCIUM CAR [Suspect]
     Indication: ABDOMINAL DISCOMFORT
     Dosage: 2 TABLET, 1 ONLY (SWALLOWED BEFORE COMPLETELY DISSOLVED), ORAL
     Route: 048
     Dates: start: 20100408, end: 20100408

REACTIONS (50)
  - EOSINOPHIL COUNT DECREASED [None]
  - RED BLOOD CELLS URINE POSITIVE [None]
  - WHITE BLOOD CELL COUNT INCREASED [None]
  - ABDOMINAL DISTENSION [None]
  - ABDOMINAL PAIN [None]
  - MEAN CELL HAEMOGLOBIN DECREASED [None]
  - PROTEIN URINE PRESENT [None]
  - ASTHENIA [None]
  - PROTEIN TOTAL INCREASED [None]
  - WRONG TECHNIQUE IN DRUG USAGE PROCESS [None]
  - CARBON DIOXIDE DECREASED [None]
  - MEAN PLATELET VOLUME DECREASED [None]
  - NEUTROPHIL PERCENTAGE INCREASED [None]
  - RED BLOOD CELL SEDIMENTATION RATE INCREASED [None]
  - ABDOMINAL TENDERNESS [None]
  - ALANINE AMINOTRANSFERASE DECREASED [None]
  - BLOOD CREATININE DECREASED [None]
  - NEUTROPHIL COUNT DECREASED [None]
  - MONOCYTE COUNT INCREASED [None]
  - URINARY SEDIMENT PRESENT [None]
  - BLOOD GLUCOSE INCREASED [None]
  - SPECIFIC GRAVITY URINE INCREASED [None]
  - FLUSHING [None]
  - DARK CIRCLES UNDER EYES [None]
  - CELLS IN URINE [None]
  - WHITE BLOOD CELLS URINE POSITIVE [None]
  - BLOOD UREA DECREASED [None]
  - DECREASED APPETITE [None]
  - PALLOR [None]
  - NAUSEA [None]
  - UROBILINOGEN URINE INCREASED [None]
  - GASTROINTESTINAL SOUNDS ABNORMAL [None]
  - INTESTINAL MUCOSAL HYPERTROPHY [None]
  - BLOOD ALBUMIN DECREASED [None]
  - BLOOD CALCIUM DECREASED [None]
  - ILEAL ULCER [None]
  - MEAN CELL VOLUME DECREASED [None]
  - PLATELET COUNT INCREASED [None]
  - URINE KETONE BODY PRESENT [None]
  - BLOOD PHOSPHORUS DECREASED [None]
  - GASTROINTESTINAL DISORDER [None]
  - PROTEIN TOTAL DECREASED [None]
  - SMALL INTESTINAL OBSTRUCTION [None]
  - FOREIGN BODY [None]
  - LYMPHADENOPATHY [None]
  - DIARRHOEA [None]
  - VOMITING [None]
  - SEROLOGY ABNORMAL [None]
  - PURULENT DISCHARGE [None]
  - ILEITIS [None]
